FAERS Safety Report 4338951-9 (Version None)
Quarter: 2004Q2

REPORT INFORMATION
  Report Type: 
  Country: None (occurrence: None)
  Receive Date: 20040409
  Receipt Date: 20040330
  Transmission Date: 20050107
  Serious: Yes (Other)
  Sender: FDA-Public Use
  Company Number: CIP04000673

PATIENT
  Age: 20 Year
  Sex: Male

DRUGS (2)
  1. ASACOL [Suspect]
     Indication: COLITIS ULCERATIVE
     Dosage: 2400 MG DAILY , ORAL
     Route: 048
  2. IMODIUM ^JANSSEN^ [Concomitant]

REACTIONS (4)
  - CHILLS [None]
  - CRYPTOGENIC ORGANIZING PNEUMONIA [None]
  - PYREXIA [None]
  - WEIGHT DECREASED [None]
